FAERS Safety Report 5741973 (Version 2)
Quarter: 2013Q1

REPORT INFORMATION
  Report Type: Spontaneous
  Country: GB (occurrence: GB)
  Receive Date: 20050218
  Receipt Date: 20130321
  Transmission Date: 20140127
  Serious: Yes (Hospitalization)
  Sender: FDA-Public Use
  Company Number: GB-JNJFOC-20050203627

PATIENT
  Age: 77 Year
  Sex: Male

DRUGS (6)
  1. IBUPROFEN [Suspect]
     Indication: HEADACHE
     Dosage: 2 TABLETS, ORAL
     Route: 048
     Dates: start: 20041113, end: 20041114
  2. BENDROFLUAZIDE [Concomitant]
     Indication: HYPERTENSION
     Route: 048
  3. TRAMADOL [Concomitant]
     Indication: ANALGESIC THERAPY
     Route: 048
  4. HYDROCORTISONE [Concomitant]
     Indication: PITUITARY INFARCTION
     Route: 048
  5. ATENOLOL [Concomitant]
     Indication: HYPERTENSION
     Route: 048
  6. THYROXINE [Concomitant]
     Indication: HYPOTHYROIDISM
     Route: 048

REACTIONS (2)
  - Barrett^s oesophagus [Recovered/Resolved]
  - Haematemesis [Recovered/Resolved]
